FAERS Safety Report 24907353 (Version 3)
Quarter: 2025Q4

REPORT INFORMATION
  Report Type: Spontaneous
  Country: JP (occurrence: JP)
  Receive Date: 20250130
  Receipt Date: 20251226
  Transmission Date: 20260118
  Serious: Yes (Death, Life-Threatening, Hospitalization, Disabling, Other)
  Sender: BRISTOL-MYERS SQUIBB COMPANY
  Company Number: JP-BRISTOL-MYERS SQUIBB COMPANY-2025-010087

PATIENT
  Age: 67 Year
  Sex: Male

DRUGS (1)
  1. ABECMA [Suspect]
     Active Substance: IDECABTAGENE VICLEUCEL
     Indication: Plasma cell myeloma
     Route: 041
     Dates: start: 20250117, end: 20250117

REACTIONS (4)
  - Cytokine release syndrome [Fatal]
  - Altered state of consciousness [Unknown]
  - Acidosis [Unknown]
  - Arrhythmia [Unknown]

NARRATIVE: CASE EVENT DATE: 20250117
